FAERS Safety Report 19222359 (Version 1)
Quarter: 2021Q2

REPORT INFORMATION
  Report Type: Spontaneous
  Country: US (occurrence: US)
  Receive Date: 20210506
  Receipt Date: 20210506
  Transmission Date: 20210717
  Serious: No
  Sender: FDA-Public Use
  Company Number: None

PATIENT
  Age: 80 Year
  Sex: Male
  Weight: 91 kg

DRUGS (1)
  1. METHOTREXATE (METHOTREXATE NA 2.5MG TAB) [Suspect]
     Active Substance: METHOTREXATE
     Indication: RHEUMATOID ARTHRITIS
     Route: 048
     Dates: start: 20190612, end: 20210207

REACTIONS (1)
  - Burkitt^s lymphoma [None]

NARRATIVE: CASE EVENT DATE: 20210407
